FAERS Safety Report 4734922-9 (Version None)
Quarter: 2005Q3

REPORT INFORMATION
  Report Type: 
  Country: None (occurrence: None)
  Receive Date: 20050804
  Receipt Date: 20050727
  Transmission Date: 20060218
  Serious: Yes (Hospitalization)
  Sender: FDA-Public Use
  Company Number: 200516817GDDC

PATIENT
  Sex: Male

DRUGS (1)
  1. TELFAST [Suspect]
     Indication: RHINITIS
     Route: 048

REACTIONS (1)
  - CONVULSION [None]
